FAERS Safety Report 8847093 (Version 1)
Quarter: 2012Q4

REPORT INFORMATION
  Report Type: Report from Study
  Country: JP (occurrence: JP)
  Receive Date: 20121018
  Receipt Date: 20121018
  Transmission Date: 20130627
  Serious: Yes (Other)
  Sender: FDA-Public Use
  Company Number: JP-VERTEX PHARMACEUTICAL INC.-AE-2012-008780

PATIENT
  Age: 51 Year
  Sex: Male

DRUGS (10)
  1. VX-950 [Suspect]
     Indication: HEPATITIS C
     Dosage: 1500 mg, qd
     Route: 048
     Dates: start: 20120418, end: 20120515
  2. VX-950 [Suspect]
     Dosage: 2250 mg, qd
     Route: 048
     Dates: start: 20120516
  3. RIBAVIRIN [Suspect]
     Indication: HEPATITIS C
     Dosage: 600 mg, qd
     Route: 048
     Dates: start: 20120418
  4. PEGINTERFERON ALFA-2B [Suspect]
     Indication: HEPATITIS C
     Dosage: 1.5 ?g/kg, UNK
     Route: 058
     Dates: start: 20120418
  5. MAINTATE [Concomitant]
     Dosage: 5 mg, qd
     Route: 048
  6. ITOROL [Concomitant]
     Dosage: 20 mg, qd
     Route: 048
  7. DOMPERIDONE [Concomitant]
     Dosage: 30 mg, qd
     Route: 048
     Dates: start: 20120418, end: 20120424
  8. ALLELOCK [Concomitant]
     Dosage: 10 mg, qd
     Route: 048
     Dates: start: 20120418, end: 20120424
  9. ALLOPURINOL [Concomitant]
     Dosage: 100 mg, qd
     Route: 048
     Dates: start: 20120418, end: 20120424
  10. HERBESSER R [Concomitant]
     Dosage: 200 mg, qd
     Route: 048

REACTIONS (1)
  - Neutrophil count decreased [Not Recovered/Not Resolved]
